FAERS Safety Report 9789820 (Version 2)
Quarter: 2014Q1

REPORT INFORMATION
  Report Type: Report from Study
  Country: US (occurrence: US)
  Receive Date: 20131231
  Receipt Date: 20140108
  Transmission Date: 20141002
  Serious: Yes (Other)
  Sender: FDA-Public Use
  Company Number: US-ROCHE-1325014

PATIENT
  Sex: Female

DRUGS (14)
  1. XOLAIR [Suspect]
     Indication: ASTHMA
     Route: 058
  2. SERTRALINE HCL [Concomitant]
     Route: 048
  3. SEREVENT DISKUS [Concomitant]
     Route: 065
  4. RELAFEN [Concomitant]
     Dosage: AS PER NEED
     Route: 065
  5. QVAR [Concomitant]
     Route: 065
  6. EPIPEN 2-PAK [Concomitant]
     Dosage: 0.3 MG/0.3 ML INJECTION UD
     Route: 065
  7. ALPRAZOLAM [Concomitant]
     Dosage: AS PER NEED
     Route: 065
  8. XYZAL [Concomitant]
     Route: 048
  9. SINGULAIR [Concomitant]
     Route: 065
  10. METHYLPREDNISOLONE [Concomitant]
     Route: 048
  11. METHYLPREDNISOLONE [Concomitant]
     Dosage: 1.5 TABLET
     Route: 048
  12. SIMVASTATIN [Concomitant]
     Route: 065
  13. PROAIR (UNITED STATES) [Concomitant]
     Dosage: 108 MCG/ACT ONE AS PER NEED
     Route: 065
  14. FLONASE [Concomitant]

REACTIONS (14)
  - Staphylococcal infection [Unknown]
  - Asthma [Unknown]
  - Rhinorrhoea [Unknown]
  - Sinusitis bacterial [Unknown]
  - Sjogren^s syndrome [Unknown]
  - Fatigue [Unknown]
  - Throat irritation [Unknown]
  - Back pain [Unknown]
  - Arthralgia [Unknown]
  - Depression [Unknown]
  - Cough [Unknown]
  - Nasal obstruction [Unknown]
  - Dysphagia [Unknown]
  - Spirometry abnormal [Unknown]
